FAERS Safety Report 8895093 (Version 1)
Quarter: 2012Q4

REPORT INFORMATION
  Report Type: 
  Country: US (occurrence: US)
  Receive Date: 20121107
  Receipt Date: 20121107
  Transmission Date: 20130627
  Serious: No
  Sender: FDA-Public Use
  Company Number: US-AMGEN-USASP2011059243

PATIENT
  Age: 52 Year
  Sex: Male
  Weight: 90.7 kg

DRUGS (4)
  1. ENBREL [Suspect]
     Indication: PRODUCT USED FOR UNKNOWN INDICATION
     Dosage: 25 mg, 2 times/wk
     Route: 058
  2. LISINOPRIL [Concomitant]
     Indication: PRODUCT USED FOR UNKNOWN INDICATION
     Dosage: 2.5 mg, UNK
  3. MULTIPLE VITAMINS [Concomitant]
  4. AMILORIDE [Concomitant]
     Dosage: 5 mg, UNK

REACTIONS (2)
  - Sinusitis [Unknown]
  - Nasopharyngitis [Recovered/Resolved]
